FAERS Safety Report 7455260-X (Version None)
Quarter: 2011Q2

REPORT INFORMATION
  Report Type: 
  Country: None (occurrence: None)
  Receive Date: 20110503
  Receipt Date: 20110420
  Transmission Date: 20111010
  Serious: Yes (Hospitalization, Other)
  Sender: FDA-Public Use
  Company Number: US-ELI_LILLY_AND_COMPANY-US200910001529

PATIENT
  Sex: Female

DRUGS (17)
  1. PLAQUENIL [Concomitant]
     Indication: SJOGREN'S SYNDROME
  2. VIBRAMYCIN /00055702/ [Concomitant]
     Route: 042
  3. ANCEF [Concomitant]
     Route: 042
  4. CALCIUM [Concomitant]
     Route: 042
  5. NEURONTIN [Concomitant]
  6. VITAMINS [Concomitant]
  7. TRAZODONE HCL [Concomitant]
  8. FORTEO [Suspect]
     Dosage: 20 UG, DAILY (1/D)
     Route: 058
  9. FORTEO [Suspect]
     Dosage: 20 UG, DAILY (1/D)
     Route: 058
  10. LEVOXYL [Concomitant]
  11. PRILOSEC [Concomitant]
  12. FORTEO [Suspect]
     Indication: OSTEOPOROSIS
     Dosage: 20 UG, DAILY (1/D)
     Route: 058
     Dates: start: 20090915
  13. PROMETHAZINE [Concomitant]
     Dosage: UNK, AS NEEDED
  14. FORTEO [Suspect]
     Dosage: 20 UG, DAILY (1/D)
     Route: 058
  15. XANAX [Concomitant]
  16. FORTEO [Suspect]
     Dosage: 20 UG, QD
     Route: 058
  17. VITAMIN D [Concomitant]
     Indication: VITAMIN D DECREASED
     Route: 042

REACTIONS (18)
  - PROCEDURAL PAIN [None]
  - POST-TRAUMATIC PAIN [None]
  - PAIN IN EXTREMITY [None]
  - ARTHRALGIA [None]
  - X-RAY ABNORMAL [None]
  - ARTHROPATHY [None]
  - FALL [None]
  - INJECTION SITE HAEMATOMA [None]
  - HEADACHE [None]
  - VITAMIN D DECREASED [None]
  - EXOSTOSIS [None]
  - HIP ARTHROPLASTY [None]
  - SEROMA [None]
  - LOSS OF CONSCIOUSNESS [None]
  - FEELING ABNORMAL [None]
  - INJECTION SITE PAIN [None]
  - DIZZINESS [None]
  - BACK PAIN [None]
